FAERS Safety Report 9727652 (Version 2)
Quarter: 2013Q4

REPORT INFORMATION
  Report Type: Report from Study
  Country: CA (occurrence: CA)
  Receive Date: 20131203
  Receipt Date: 20131203
  Transmission Date: 20140711
  Serious: Yes (Hospitalization, Other)
  Sender: FDA-Public Use
  Company Number: PHHY2013CA130702

PATIENT
  Age: 62 Year
  Sex: Male

DRUGS (10)
  1. CLOZARIL [Suspect]
     Dosage: UNK UKN, UNK
     Dates: start: 19990216
  2. CLOZARIL [Suspect]
     Dosage: 7 G, UNK
     Dates: start: 19990216
  3. CLOZARIL [Suspect]
     Dosage: UNK UKN, UNK
     Dates: start: 19990216
  4. EFEXOR XR [Concomitant]
     Dosage: UNK UKN, UNK
  5. PAXYL [Concomitant]
     Dosage: UNK UKN, UNK
  6. SEROQUEL [Concomitant]
     Dosage: UNK UKN, UNK
  7. ATIVAN [Concomitant]
     Dosage: UNK UKN, UNK
  8. COGENTIN [Concomitant]
     Dosage: UNK UKN, UNK
  9. RISPERIDONE ALMUS [Concomitant]
     Dosage: 3 MG, 1 MG DAILY AND 2 MG AT BEDTIME
  10. CLONAZEPAN [Concomitant]
     Dosage: 1 MG, AT BEDTIME

REACTIONS (11)
  - Fluid overload [Unknown]
  - Depressed level of consciousness [Unknown]
  - Depression [Unknown]
  - Insomnia [Unknown]
  - Haematuria [Unknown]
  - Hyperhidrosis [Unknown]
  - Pneumonia [Unknown]
  - Dyspnoea [Unknown]
  - Blood pressure increased [Unknown]
  - Suicide attempt [Unknown]
  - Overdose [Unknown]
